FAERS Safety Report 7517728 (Version 4)
Quarter: 2012Q4

REPORT INFORMATION
  Report Type: 
  Country: US (occurrence: US)
  Receive Date: 20100802
  Receipt Date: 20121114
  Transmission Date: 20130627
  Serious: Yes (Hospitalization, Other)
  Sender: FDA-Public Use
  Company Number: US-BIOGENIDEC-2010BI025196

PATIENT
  Age: 43 Year
  Sex: Female

DRUGS (5)
  1. TYSABRI [Suspect]
     Indication: MULTIPLE SCLEROSIS
     Route: 042
     Dates: start: 20070315, end: 20070808
  2. TYSABRI [Suspect]
     Indication: MULTIPLE SCLEROSIS
     Route: 042
     Dates: start: 20080220, end: 20081222
  3. TYSABRI [Suspect]
     Indication: MULTIPLE SCLEROSIS
     Route: 042
     Dates: start: 20090222, end: 20090311
  4. TYSABRI [Suspect]
     Indication: MULTIPLE SCLEROSIS
     Route: 042
     Dates: start: 20091005, end: 20091102
  5. TYSABRI [Suspect]
     Indication: MULTIPLE SCLEROSIS
     Route: 042
     Dates: start: 20100916, end: 20101112

REACTIONS (6)
  - Multiple sclerosis relapse [Unknown]
  - General physical health deterioration [Not Recovered/Not Resolved]
  - Convulsion [Recovered/Resolved]
  - Poor venous access [Recovered/Resolved]
  - Urinary tract infection [Recovered/Resolved]
  - Activities of daily living impaired [Not Recovered/Not Resolved]
